FAERS Safety Report 10248166 (Version 1)
Quarter: 2014Q2

REPORT INFORMATION
  Report Type: Spontaneous
  Country: FR (occurrence: FR)
  Receive Date: 20140620
  Receipt Date: 20140620
  Transmission Date: 20141212
  Serious: Yes (Hospitalization)
  Sender: FDA-Public Use
  Company Number: FR-AMGEN-FRASP2014045583

PATIENT
  Age: 61 Year
  Sex: Female

DRUGS (4)
  1. ENBREL [Suspect]
     Indication: ANKYLOSING SPONDYLITIS
     Dosage: 50 MG, WEEKLY
     Route: 058
     Dates: start: 201004
  2. ENBREL [Suspect]
     Dosage: 50 MG EVERY FORTNIGHT
     Route: 058
  3. ENBREL [Suspect]
     Dosage: 50 MG, MONTHLY
     Route: 058
     Dates: end: 201311
  4. HUMIRA [Suspect]
     Indication: ANKYLOSING SPONDYLITIS
     Dosage: UNK
     Route: 058
     Dates: start: 2009, end: 201004

REACTIONS (1)
  - Endometrial cancer [Not Recovered/Not Resolved]
